FAERS Safety Report 8301230-9 (Version None)
Quarter: 2012Q2

REPORT INFORMATION
  Report Type: 
  Country: None (occurrence: None)
  Receive Date: 20120420
  Receipt Date: 20120420
  Transmission Date: 20120825
  Serious: Yes (Hospitalization)
  Sender: FDA-Public Use
  Company Number: None

PATIENT
  Age: 49 Year
  Sex: Female
  Weight: 74.842 kg

DRUGS (4)
  1. ADVIL PM [Concomitant]
     Route: 048
  2. ASPIRIN [Concomitant]
     Route: 048
  3. ENALAPRIL MALEATE [Suspect]
     Indication: ESSENTIAL HYPERTENSION
     Dosage: 10MG
     Route: 048
     Dates: start: 20080101, end: 20120419
  4. SERTRALINE HYDROCHLORIDE [Concomitant]
     Route: 048

REACTIONS (1)
  - ANGIOEDEMA [None]
